FAERS Safety Report 24288526 (Version 3)
Quarter: 2024Q4

REPORT INFORMATION
  Report Type: Spontaneous
  Country: US (occurrence: US)
  Receive Date: 20240906
  Receipt Date: 20241018
  Transmission Date: 20250115
  Serious: Yes (Other)
  Sender: UCB
  Company Number: US-UCBSA-2024035238

PATIENT
  Sex: Female
  Weight: 63.492 kg

DRUGS (1)
  1. BIMZELX [Suspect]
     Active Substance: BIMEKIZUMAB-BKZX
     Indication: Psoriasis
     Dosage: 320 MILLIGRAM, EV 4 WEEKS (AT WEEKS 0, 4, 8, 12 AND 16 AS DIRECTED)
     Route: 058
     Dates: start: 202406, end: 2024

REACTIONS (6)
  - Bronchitis [Unknown]
  - Pneumonia [Unknown]
  - Swelling [Unknown]
  - Pain [Unknown]
  - Psoriasis [Not Recovered/Not Resolved]
  - Drug ineffective [Unknown]

NARRATIVE: CASE EVENT DATE: 20240101
